FAERS Safety Report 4653826-3 (Version None)
Quarter: 2005Q2

REPORT INFORMATION
  Report Type: 
  Country: None (occurrence: None)
  Receive Date: 20050504
  Receipt Date: 20050419
  Transmission Date: 20051028
  Serious: Yes (Hospitalization)
  Sender: FDA-Public Use
  Company Number: 2005BI001593

PATIENT
  Age: 50 Year
  Sex: Female

DRUGS (7)
  1. NATALIZUMAB [Suspect]
     Indication: MULTIPLE SCLEROSIS
     Dosage: 300 MG; QM; IV
     Route: 042
     Dates: start: 20041220, end: 20050222
  2. LITHIUM [Concomitant]
  3. BACLOFEN [Concomitant]
  4. CYLERT [Concomitant]
  5. ARICEPT [Concomitant]
  6. KLONOPIN [Concomitant]
  7. SEROQUEL [Concomitant]

REACTIONS (2)
  - ACCIDENTAL OVERDOSE [None]
  - HAEMODIALYSIS [None]
